FAERS Safety Report 4993054-5 (Version None)
Quarter: 2006Q1

REPORT INFORMATION
  Report Type: 
  Country: None (occurrence: None)
  Receive Date: 20060313
  Receipt Date: 20051129
  Transmission Date: 20060701
  Serious: No
  Sender: FDA-Public Use
  Company Number: 2005-BP-16659BP

PATIENT
  Age: 81 Year
  Sex: Male

DRUGS (2)
  1. SPIRIVA [Suspect]
     Dosage: 18 MCG (18 MCG),IH
     Dates: start: 20050801
  2. SPIRIVA [Suspect]

REACTIONS (1)
  - DYSPNOEA [None]
